FAERS Safety Report 8832405 (Version 7)
Quarter: 2016Q2

REPORT INFORMATION
  Report Type: Spontaneous
  Country: CA (occurrence: CA)
  Receive Date: 20121009
  Receipt Date: 20160504
  Transmission Date: 20160815
  Serious: Yes (Other)
  Sender: FDA-Public Use
  Company Number: CA-ROCHE-1139245

PATIENT
  Age: 34 Year
  Sex: Female

DRUGS (4)
  1. XOLAIR [Suspect]
     Active Substance: OMALIZUMAB
     Indication: ASTHMA
     Route: 058
     Dates: start: 20100517
  2. XOLAIR [Suspect]
     Active Substance: OMALIZUMAB
     Route: 058
     Dates: start: 20160330
  3. XOLAIR [Suspect]
     Active Substance: OMALIZUMAB
     Route: 058
  4. XOLAIR [Suspect]
     Active Substance: OMALIZUMAB
     Route: 058
     Dates: start: 20160426

REACTIONS (15)
  - Influenza [Unknown]
  - Insomnia [Unknown]
  - Upper respiratory tract congestion [Recovered/Resolved]
  - Dyspnoea [Recovering/Resolving]
  - Chest pain [Recovering/Resolving]
  - Nasopharyngitis [Recovering/Resolving]
  - Fatigue [Unknown]
  - Headache [Unknown]
  - Drug ineffective [Unknown]
  - Respiratory tract congestion [Unknown]
  - Rhinorrhoea [Unknown]
  - Cough [Unknown]
  - Total lung capacity decreased [Unknown]
  - Dizziness [Unknown]
  - Depressed mood [Unknown]

NARRATIVE: CASE EVENT DATE: 201111
